FAERS Safety Report 25494699 (Version 1)
Quarter: 2025Q2

REPORT INFORMATION
  Report Type: Spontaneous
  Country: US (occurrence: None)
  Receive Date: 20250628
  Receipt Date: 20250628
  Transmission Date: 20250716
  Serious: Yes (Hospitalization)
  Sender: FDA-CTU
  Company Number: None

PATIENT
  Age: 64 Year
  Sex: Female
  Weight: 65 kg

DRUGS (2)
  1. CARBOPLATIN [Suspect]
     Active Substance: CARBOPLATIN
  2. TAXOTERE [Suspect]
     Active Substance: DOCETAXEL

REACTIONS (12)
  - Diarrhoea [None]
  - Fatigue [None]
  - Dyspnoea [None]
  - Hypotension [None]
  - Haemoglobin decreased [None]
  - Febrile neutropenia [None]
  - Heart rate increased [None]
  - Hypovolaemic shock [None]
  - Septic shock [None]
  - Lower respiratory tract infection [None]
  - Pneumonia pseudomonal [None]
  - Distributive shock [None]

NARRATIVE: CASE EVENT DATE: 20250522
